FAERS Safety Report 4864453-7 (Version None)
Quarter: 2005Q4

REPORT INFORMATION
  Report Type: 
  Country: None (occurrence: None)
  Receive Date: 20051222
  Receipt Date: 20050318
  Transmission Date: 20060501
  Serious: Yes (Hospitalization)
  Sender: FDA-Public Use
  Company Number: GB-BRISTOL-MYERS SQUIBB COMPANY-12904058

PATIENT
  Age: 80 Year
  Sex: Female

DRUGS (2)
  1. MODITEN DEPOT [Suspect]
  2. RISPERDAL [Suspect]

REACTIONS (2)
  - HYPOTENSION [None]
  - URINARY TRACT INFECTION [None]
